FAERS Safety Report 6104932-8 (Version None)
Quarter: 2009Q1

REPORT INFORMATION
  Report Type: 
  Country: None (occurrence: None)
  Receive Date: 20090306
  Receipt Date: 20090225
  Transmission Date: 20090719
  Serious: Yes (Life-Threatening, Hospitalization)
  Sender: FDA-Public Use
  Company Number: GB-AMGEN-UK335857

PATIENT
  Age: 5 Year
  Sex: Female
  Weight: 13.2 kg

DRUGS (2)
  1. KINERET [Suspect]
     Indication: ARTHRITIS
     Route: 058
     Dates: start: 20080725
  2. SEPTRIN [Concomitant]
     Route: 048
     Dates: start: 20080701

REACTIONS (1)
  - MYOCARDITIS [None]
